FAERS Safety Report 14208642 (Version 1)
Quarter: 2017Q4

REPORT INFORMATION
  Report Type: Spontaneous
  Country: US (occurrence: US)
  Receive Date: 20171121
  Receipt Date: 20171121
  Transmission Date: 20180321
  Serious: Yes (Death, Hospitalization)
  Sender: FDA-Public Use
  Company Number: US-G+W LABS-GW2017US000298

PATIENT

DRUGS (2)
  1. ACETAMINOPHEN. [Suspect]
     Active Substance: ACETAMINOPHEN
     Indication: BACK PAIN
     Dosage: UNK
     Route: 065
  2. NSAIDS [Concomitant]
     Active Substance: UNSPECIFIED INGREDIENT
     Indication: BACK PAIN

REACTIONS (6)
  - Intentional product misuse [Unknown]
  - Acute hepatic failure [Unknown]
  - Cardio-respiratory arrest [Fatal]
  - Hyperkalaemia [Unknown]
  - Intestinal ischaemia [Unknown]
  - Gastrointestinal haemorrhage [Unknown]
